FAERS Safety Report 6292985-6 (Version None)
Quarter: 2009Q3

REPORT INFORMATION
  Report Type: 
  Country: None (occurrence: None)
  Receive Date: 20090731
  Receipt Date: 20090720
  Transmission Date: 20100115
  Serious: Yes (Other)
  Sender: FDA-Public Use
  Company Number: US-JNJFOC-20090707091

PATIENT
  Age: 81 Year
  Sex: Female
  Weight: 56.7 kg

DRUGS (2)
  1. SIMPLY SLEEP NIGHTTIME [Suspect]
     Indication: INSOMNIA
     Route: 048
  2. LOPRESSOR [Concomitant]
     Indication: PALPITATIONS

REACTIONS (3)
  - DRUG DEPENDENCE [None]
  - FEELINGS OF WORTHLESSNESS [None]
  - MIDDLE INSOMNIA [None]
